FAERS Safety Report 8733180 (Version 2)
Quarter: 2013Q3

REPORT INFORMATION
  Report Type: Spontaneous
  Country: FR (occurrence: FR)
  Receive Date: 20120821
  Receipt Date: 20130708
  Transmission Date: 20140515
  Serious: Yes (Hospitalization)
  Sender: FDA-Public Use
  Company Number: FR-AMGEN-FRASP2012051982

PATIENT
  Age: 10 Year
  Sex: Female
  Weight: 27.9 kg

DRUGS (1)
  1. ENBREL [Suspect]
     Indication: JUVENILE IDIOPATHIC ARTHRITIS
     Dosage: 20 MG EVERY 15 DAYS
     Route: 058
     Dates: start: 200912

REACTIONS (1)
  - VIIth nerve paralysis [Recovered/Resolved]
